FAERS Safety Report 10200924 (Version 2)
Quarter: 2014Q2

REPORT INFORMATION
  Report Type: Spontaneous
  Country: US (occurrence: US)
  Receive Date: 20140528
  Receipt Date: 20140612
  Transmission Date: 20141212
  Serious: Yes (Other)
  Sender: FDA-Public Use
  Company Number: US-JNJFOC-20140511662

PATIENT
  Sex: Female

DRUGS (1)
  1. DURAGESIC [Suspect]
     Indication: CANCER PAIN
     Route: 062

REACTIONS (4)
  - Adverse drug reaction [Unknown]
  - Drug dose omission [Unknown]
  - Wrong technique in drug usage process [Unknown]
  - Product quality issue [Unknown]
